FAERS Safety Report 20225089 (Version 2)
Quarter: 2021Q4

REPORT INFORMATION
  Report Type: Spontaneous
  Country: RO (occurrence: RO)
  Receive Date: 20211223
  Receipt Date: 20211228
  Transmission Date: 20220303
  Serious: Yes (Hospitalization)
  Sender: FDA-Public Use
  Company Number: RO-MYLANLABS-2021M1092625

PATIENT
  Age: 14 Year
  Sex: Male

DRUGS (5)
  1. PREZISTA [Suspect]
     Active Substance: DARUNAVIR ETHANOLATE
     Indication: HIV infection
     Dosage: 600 MILLIGRAM, BID (TWICE DAILLY)
     Route: 048
     Dates: start: 201710, end: 202012
  2. CORTISONE [Concomitant]
     Active Substance: CORTISONE
  3. LAMIVUDINE [Concomitant]
     Active Substance: LAMIVUDINE
  4. RITONAVIR [Concomitant]
     Active Substance: RITONAVIR
  5. RALTEGRAVIR [Concomitant]
     Active Substance: RALTEGRAVIR

REACTIONS (1)
  - Haemophagocytic lymphohistiocytosis [Recovered/Resolved with Sequelae]
